FAERS Safety Report 20895364 (Version 1)
Quarter: 2022Q2

REPORT INFORMATION
  Report Type: Spontaneous
  Country: US (occurrence: None)
  Receive Date: 20220531
  Receipt Date: 20220531
  Transmission Date: 20220721
  Serious: No
  Sender: FDA-Public Use
  Company Number: None

PATIENT
  Sex: Female

DRUGS (1)
  1. HUMIRA [Suspect]
     Active Substance: ADALIMUMAB
     Indication: Juvenile idiopathic arthritis
     Dosage: 40MG  EVERY OTHER WEEK SUB-Q?
     Route: 058
     Dates: start: 20220528

REACTIONS (3)
  - Wrong technique in device usage process [None]
  - Device leakage [None]
  - Incorrect dose administered [None]
